APPROVED DRUG PRODUCT: QUININE SULFATE
Active Ingredient: QUININE SULFATE
Strength: 324MG
Dosage Form/Route: CAPSULE;ORAL
Application: A203112 | Product #001 | TE Code: AB
Applicant: LUPIN LTD
Approved: Apr 24, 2015 | RLD: No | RS: No | Type: RX